FAERS Safety Report 6011401-2 (Version None)
Quarter: 2008Q4

REPORT INFORMATION
  Report Type: 
  Country: None (occurrence: None)
  Receive Date: 20081218
  Receipt Date: 19770426
  Transmission Date: 20090506
  Serious: Yes (Death)
  Sender: FDA-Public Use
  Company Number: US-ROCHE-12246

PATIENT
  Age: 58 Year
  Sex: Male
  Weight: 50.9 kg

DRUGS (4)
  1. DIAZEPAM [Suspect]
     Indication: ANXIETY
     Route: 048
     Dates: start: 19740101
  2. SYNTESTAN [Suspect]
     Indication: RHEUMATOID ARTHRITIS
     Route: 048
     Dates: start: 19760601
  3. METHADONE HCL [Suspect]
     Route: 048
  4. DALMANE [Suspect]
     Indication: SOMNOLENCE
     Route: 048
     Dates: start: 19761001

REACTIONS (1)
  - DEATH [None]
